FAERS Safety Report 15579454 (Version 1)
Quarter: 2018Q4

REPORT INFORMATION
  Report Type: Spontaneous
  Country: BR (occurrence: BR)
  Receive Date: 20181102
  Receipt Date: 20181102
  Transmission Date: 20190205
  Serious: Yes (Other)
  Sender: FDA-Public Use
  Company Number: BR-SA-2017SA244425

PATIENT
  Sex: Female
  Weight: 65 kg

DRUGS (1)
  1. CLEXANE [Suspect]
     Active Substance: ENOXAPARIN SODIUM
     Indication: HYPERCOAGULATION
     Dosage: UNK UNK,QD
     Route: 051

REACTIONS (3)
  - Foetal death [Unknown]
  - Exposure during pregnancy [Unknown]
  - Drug ineffective [Unknown]
